FAERS Safety Report 20691728 (Version 1)
Quarter: 2022Q2

REPORT INFORMATION
  Report Type: Spontaneous
  Country: US (occurrence: None)
  Receive Date: 20220407
  Receipt Date: 20220407
  Transmission Date: 20220721
  Serious: Yes (Hospitalization)
  Sender: FDA-Public Use
  Company Number: None

PATIENT
  Age: 80 Year
  Sex: Male
  Weight: 82 kg

DRUGS (1)
  1. APIXABAN [Suspect]
     Active Substance: APIXABAN
     Indication: Atrial fibrillation
     Dosage: FREQUENCY : TWICE A DAY;?
     Route: 048
     Dates: start: 20181205

REACTIONS (5)
  - Faeces discoloured [None]
  - Haemoglobin decreased [None]
  - Platelet count decreased [None]
  - Gastrointestinal angiodysplasia [None]
  - Anaemia [None]

NARRATIVE: CASE EVENT DATE: 20220324
